FAERS Safety Report 23627810 (Version 1)
Quarter: 2024Q1

REPORT INFORMATION
  Report Type: Spontaneous
  Country: US (occurrence: US)
  Receive Date: 20240313
  Receipt Date: 20240313
  Transmission Date: 20240410
  Serious: No
  Sender: FDA-Public Use
  Company Number: US-Ascend Therapeutics US, LLC-2154352

PATIENT

DRUGS (2)
  1. ANDROGEL [Suspect]
     Active Substance: TESTOSTERONE
     Route: 065
  2. ANDROGEL [Suspect]
     Active Substance: TESTOSTERONE
     Route: 065

REACTIONS (1)
  - Product use in unapproved indication [Unknown]
